FAERS Safety Report 5103121-3 (Version None)
Quarter: 2006Q3

REPORT INFORMATION
  Report Type: 
  Country: None (occurrence: None)
  Receive Date: 20060908
  Receipt Date: 20060907
  Transmission Date: 20061208
  Serious: Yes (Life-Threatening, Hospitalization, Other)
  Sender: FDA-Public Use
  Company Number: 2006AL002537

PATIENT
  Age: 86 Year
  Sex: Female

DRUGS (6)
  1. SULFATRIM AND SULFATRIM PEDIATRIC SUSPENSION (SULFAMETHOXAZOLE/TRIMETH [Suspect]
     Dosage: 75 MG;QD;PO
     Route: 048
     Dates: start: 20060511, end: 20060516
  2. ATENOLOL [Concomitant]
  3. LANSOPRAZOLE [Concomitant]
  4. NITROFURANTOIN [Concomitant]
  5. ASPIRIN [Concomitant]
  6. CLOPIDOGREL [Concomitant]

REACTIONS (1)
  - NEUTROPENIA [None]
